FAERS Safety Report 7792612-2 (Version None)
Quarter: 2011Q4

REPORT INFORMATION
  Report Type: 
  Country: None (occurrence: None)
  Receive Date: 20111003
  Receipt Date: 20110929
  Transmission Date: 20120403
  Serious: Yes (Hospitalization)
  Sender: FDA-Public Use
  Company Number: JP-ABBOTT-11P-087-0718276-00

PATIENT
  Sex: Female
  Weight: 41 kg

DRUGS (19)
  1. FOLIC ACID [Concomitant]
     Indication: ADVERSE EVENT
  2. LACTOMIN [Concomitant]
     Indication: PRODUCT USED FOR UNKNOWN INDICATION
  3. TEPRENONE [Concomitant]
     Indication: PROPHYLAXIS
  4. HUMIRA [Suspect]
     Indication: RHEUMATOID ARTHRITIS
     Route: 058
     Dates: start: 20091111, end: 20110301
  5. MIZORIBINE [Concomitant]
     Indication: RHEUMATOID ARTHRITIS
     Route: 048
     Dates: start: 20090930, end: 20110314
  6. TEPRENONE [Concomitant]
     Indication: GASTRIC DISORDER
     Route: 048
     Dates: start: 20090930, end: 20110314
  7. SENNA LEAF [Concomitant]
     Indication: PRODUCT USED FOR UNKNOWN INDICATION
  8. BUCILLAMINE [Concomitant]
     Indication: RHEUMATOID ARTHRITIS
     Route: 048
     Dates: start: 20090930, end: 20110314
  9. ZALTOPROFEN [Concomitant]
     Indication: RHEUMATOID ARTHRITIS
     Route: 048
     Dates: start: 20090930, end: 20110314
  10. LORNOXICAM [Concomitant]
     Indication: RHEUMATOID ARTHRITIS
     Route: 048
     Dates: start: 20090930, end: 20110314
  11. ISONIAZID [Concomitant]
     Indication: ANTIBIOTIC PROPHYLAXIS
     Route: 048
     Dates: start: 20091021, end: 20110314
  12. NIZATIDINE [Concomitant]
     Indication: PRODUCT USED FOR UNKNOWN INDICATION
  13. MINODRONIC ACID HYDRATE [Concomitant]
     Indication: OSTEOPOROSIS PROPHYLAXIS
     Route: 048
     Dates: start: 20100901, end: 20110314
  14. AMLODIPINE BESYLATE [Concomitant]
     Indication: HYPERTENSION
     Route: 048
  15. FOLIC ACID [Concomitant]
     Indication: PROPHYLAXIS
     Route: 048
     Dates: start: 20091002, end: 20110314
  16. PREDNISOLONE [Concomitant]
     Indication: RHEUMATOID ARTHRITIS
     Route: 048
     Dates: start: 20090930, end: 20110314
  17. TEPRENONE [Concomitant]
     Indication: GASTRITIS PROPHYLAXIS
  18. METHOTREXATE [Concomitant]
     Indication: RHEUMATOID ARTHRITIS
     Dosage: 4MG/WEEK
     Route: 048
     Dates: start: 20090930, end: 20110314
  19. MECOBALAMIN [Concomitant]
     Indication: RHEUMATOID ARTHRITIS
     Route: 048
     Dates: start: 20090930, end: 20110314

REACTIONS (2)
  - HERPES ZOSTER [None]
  - CEREBRAL INFARCTION [None]
